FAERS Safety Report 7481508-1 (Version None)
Quarter: 2011Q2

REPORT INFORMATION
  Report Type: 
  Country: None (occurrence: None)
  Receive Date: 20110516
  Receipt Date: 20110427
  Transmission Date: 20111010
  Serious: No
  Sender: FDA-Public Use
  Company Number: US-B.I. PHARMACEUTICALS,INC./RIDGEFIELD-2011-BP-07914BP

PATIENT
  Sex: Female

DRUGS (12)
  1. DIOVAN [Concomitant]
  2. METOPROLOL SUCCINATE [Concomitant]
  3. COLCRYS [Concomitant]
  4. COLCRYS [Concomitant]
  5. DIGOXIN [Concomitant]
  6. SYNTHROID [Concomitant]
  7. PRADAXA [Suspect]
     Indication: ATRIAL FIBRILLATION
     Dosage: 300 MG
     Route: 048
     Dates: start: 20110309
  8. NORCO [Concomitant]
     Route: 048
  9. ALLOPURINOL [Concomitant]
     Dosage: 300 MG
  10. SIMVASTATIN [Concomitant]
  11. SYNTHROID [Concomitant]
  12. METOPROLOL SUCCINATE [Concomitant]

REACTIONS (3)
  - HAEMORRHOIDAL HAEMORRHAGE [None]
  - RECTAL HAEMORRHAGE [None]
  - CONSTIPATION [None]
